FAERS Safety Report 6231508-4 (Version None)
Quarter: 2009Q2

REPORT INFORMATION
  Report Type: 
  Country: None (occurrence: None)
  Receive Date: 20090616
  Receipt Date: 20090608
  Transmission Date: 20091009
  Serious: Yes (Other)
  Sender: FDA-Public Use
  Company Number: B0574873A

PATIENT
  Sex: Male

DRUGS (6)
  1. CLAVAMOX [Suspect]
     Indication: OTITIS MEDIA
     Dosage: .75G TWICE PER DAY
     Route: 048
     Dates: start: 20090316, end: 20090320
  2. CLAVAMOX [Suspect]
     Indication: RHINITIS
     Dosage: .75G TWICE PER DAY
     Route: 048
     Dates: start: 20090330, end: 20090331
  3. BIOFERMIN R [Concomitant]
     Dosage: 1.5G PER DAY
     Route: 048
     Dates: start: 20090330, end: 20090331
  4. POLARAMINE [Concomitant]
     Dosage: .69G PER DAY
     Route: 048
     Dates: start: 20090330, end: 20090331
  5. ASVERIN [Concomitant]
     Indication: COUGH
     Dosage: .81G PER DAY
     Route: 048
     Dates: start: 20090330, end: 20090331
  6. MUCODYNE [Concomitant]
     Indication: PRODUCTIVE COUGH
     Dosage: .81G PER DAY
     Route: 048
     Dates: start: 20090330, end: 20090331

REACTIONS (2)
  - DIARRHOEA HAEMORRHAGIC [None]
  - ENTEROCOLITIS HAEMORRHAGIC [None]
